FAERS Safety Report 5177584-1 (Version None)
Quarter: 2006Q4

REPORT INFORMATION
  Report Type: 
  Country: None (occurrence: None)
  Receive Date: 20061207
  Receipt Date: 20061128
  Transmission Date: 20070319
  Serious: Yes (Other)
  Sender: FDA-Public Use
  Company Number: 2006119117

PATIENT
  Sex: Male
  Weight: 108.8633 kg

DRUGS (11)
  1. IRINOTECAN HCL [Suspect]
     Indication: COLON CANCER
     Dosage: 150 MG (150 MG), INTRAVENOUS
     Route: 042
     Dates: start: 20060406
  2. ALL OTHER THERAPEUTIC PRODUCTS (ALL OTHER THERAPEUTIC PRODUCTS) [Concomitant]
  3. ATROPINE [Concomitant]
  4. ALLOPURINOL [Concomitant]
  5. ASPIRIN [Concomitant]
  6. PLAVIX [Concomitant]
  7. TRIAMTERENE (TRIAMTERENE) [Concomitant]
  8. SIMVASTATIN [Concomitant]
  9. INSULIN (INSULIN) [Concomitant]
  10. NORVASC [Concomitant]
  11. METFORMIN HCL [Concomitant]

REACTIONS (5)
  - DIARRHOEA [None]
  - FATIGUE [None]
  - HAEMOGLOBIN DECREASED [None]
  - IMMOBILE [None]
  - RED BLOOD CELL COUNT DECREASED [None]
